FAERS Safety Report 17413471 (Version 1)
Quarter: 2020Q1

REPORT INFORMATION
  Report Type: Spontaneous
  Country: AU (occurrence: AU)
  Receive Date: 20200213
  Receipt Date: 20200213
  Transmission Date: 20200409
  Serious: Yes (Hospitalization)
  Sender: FDA-Public Use
  Company Number: AU-ASTRAZENECA-2018SE49154

PATIENT
  Age: 47 Year
  Sex: Male

DRUGS (7)
  1. ESOMEPRAZOLE. [Concomitant]
     Active Substance: ESOMEPRAZOLE MAGNESIUM
  2. ESCITALOPRAM [Concomitant]
     Active Substance: ESCITALOPRAM OXALATE
  3. CLOZAPINE. [Suspect]
     Active Substance: CLOZAPINE
     Route: 065
  4. GLICLAZIDE [Concomitant]
     Active Substance: GLICLAZIDE
  5. ATORVASTATIN [Concomitant]
     Active Substance: ATORVASTATIN
  6. DAPAGLIFOZIN [Suspect]
     Active Substance: DAPAGLIFLOZIN
     Route: 048
     Dates: end: 20170720
  7. SITAGLIPTIN-METFORMIN [Concomitant]
     Active Substance: METFORMIN\SITAGLIPTIN

REACTIONS (1)
  - Diabetic ketoacidosis [Recovered/Resolved]

NARRATIVE: CASE EVENT DATE: 20170720
